FAERS Safety Report 13362699 (Version 1)
Quarter: 2017Q1

REPORT INFORMATION
  Report Type: Report from Study
  Country: GB (occurrence: GB)
  Receive Date: 20170323
  Receipt Date: 20170323
  Transmission Date: 20170429
  Serious: Yes (Hospitalization, Other)
  Sender: FDA-Public Use
  Company Number: GB-AMGEN-GBRSL2017043527

PATIENT
  Age: 87 Year
  Sex: Female

DRUGS (1)
  1. ARANESP [Suspect]
     Active Substance: DARBEPOETIN ALFA
     Indication: PRODUCT USED FOR UNKNOWN INDICATION
     Dosage: 30 MCG, UNK
     Route: 065

REACTIONS (4)
  - Transient ischaemic attack [Unknown]
  - Blood cholesterol abnormal [Unknown]
  - Glucose tolerance impaired [Unknown]
  - Epistaxis [Unknown]

NARRATIVE: CASE EVENT DATE: 201703
